FAERS Safety Report 4569166-7 (Version None)
Quarter: 2005Q1

REPORT INFORMATION
  Report Type: 
  Country: None (occurrence: None)
  Receive Date: 20050126
  Receipt Date: 20050110
  Transmission Date: 20050727
  Serious: Yes (Other)
  Sender: FDA-Public Use
  Company Number: 200510006BCA

PATIENT
  Age: 35 Year
  Sex: Male

DRUGS (15)
  1. GAMUNEX [Suspect]
     Indication: HYPOGAMMAGLOBULINAEMIA
     Dosage: SEE IMAGE; A FEW YEARS
     Route: 042
  2. GAMUNEX [Suspect]
     Indication: IDIOPATHIC THROMBOCYTOPENIC PURPURA
     Dosage: SEE IMAGE; A FEW YEARS
     Route: 042
  3. GAMUNEX [Suspect]
  4. GAMUNEX [Suspect]
  5. GAMUNEX [Suspect]
  6. GAMUNEX [Suspect]
  7. GAMUNEX [Suspect]
  8. GAMUNEX [Suspect]
  9. GAMUNEX [Suspect]
  10. GAMUNEX [Suspect]
  11. GAMUNEX [Suspect]
  12. ZINC [Concomitant]
  13. PREDNISONE [Concomitant]
  14. BIAXIN [Concomitant]
  15. LASIX [Concomitant]

REACTIONS (2)
  - COOMBS DIRECT TEST POSITIVE [None]
  - HEPATITIS C ANTIBODY POSITIVE [None]
